FAERS Safety Report 20242118 (Version 1)
Quarter: 2021Q4

REPORT INFORMATION
  Report Type: Other
  Country: US (occurrence: US)
  Receive Date: 20211228
  Receipt Date: 20211228
  Transmission Date: 20220304
  Serious: No
  Sender: FDA-Public Use
  Company Number: US-ELITE LABORATORIES INC.-2021ELT00173

PATIENT
  Age: 64 Year
  Sex: Female
  Weight: 58.957 kg

DRUGS (3)
  1. DEXTROAMPHET SACCHARAT, AMPHET ASPARTATE, DEXTROAMPHET SULFATE AND AMP [Suspect]
     Active Substance: AMPHETAMINE ASPARTATE\AMPHETAMINE SULFATE\DEXTROAMPHETAMINE SACCHARATE\DEXTROAMPHETAMINE SULFATE
     Indication: Attention deficit hyperactivity disorder
     Dosage: 20 MG, 1X/DAY, IN THE MORNING AT 7AM
     Route: 048
     Dates: start: 20210916, end: 20210916
  2. LOSARTAN [Concomitant]
     Active Substance: LOSARTAN
  3. ARMOUR THYROID [Concomitant]
     Active Substance: THYROID, PORCINE

REACTIONS (9)
  - Hyperacusis [Recovered/Resolved]
  - Mental disorder [Recovered/Resolved]
  - Performance status decreased [Recovered/Resolved]
  - Hypoaesthesia [Recovering/Resolving]
  - Drug ineffective [Recovered/Resolved]
  - Product substitution issue [Recovered/Resolved]
  - Anxiety [Recovered/Resolved]
  - Headache [Recovered/Resolved]
  - Nausea [Recovered/Resolved]

NARRATIVE: CASE EVENT DATE: 20210916
